FAERS Safety Report 13469447 (Version 1)
Quarter: 2017Q2

REPORT INFORMATION
  Report Type: Spontaneous
  Country: US (occurrence: US)
  Receive Date: 20170421
  Receipt Date: 20170421
  Transmission Date: 20170830
  Serious: Yes (Other)
  Sender: FDA-Public Use
  Company Number: US-ROCHE-724517

PATIENT
  Age: 21 Year
  Sex: Male
  Weight: 185 kg

DRUGS (2)
  1. ACCUTANE [Suspect]
     Active Substance: ISOTRETINOIN
     Indication: ACNE
     Route: 065
     Dates: start: 200611, end: 20061227
  2. IBUPROFEN. [Concomitant]
     Active Substance: IBUPROFEN
     Route: 065

REACTIONS (16)
  - Nausea [Unknown]
  - Abdominal pain [Unknown]
  - Inflammatory bowel disease [Unknown]
  - Back pain [Unknown]
  - Arthritis [Unknown]
  - Insomnia [Unknown]
  - Haematochezia [Unknown]
  - Colitis ulcerative [Unknown]
  - Chest pain [Unknown]
  - Depression [Unknown]
  - Rectal haemorrhage [Unknown]
  - Anaemia [Unknown]
  - Ankylosing spondylitis [Unknown]
  - Oedema [Unknown]
  - Dyspnoea [Unknown]
  - Sacroiliitis [Unknown]

NARRATIVE: CASE EVENT DATE: 200612
